FAERS Safety Report 23681540 (Version 1)
Quarter: 2024Q1

REPORT INFORMATION
  Report Type: Spontaneous
  Country: RO (occurrence: RO)
  Receive Date: 20240328
  Receipt Date: 20240328
  Transmission Date: 20240410
  Serious: Yes (Other)
  Sender: FDA-Public Use
  Company Number: RO-PFIZER INC-PV202400035832

PATIENT
  Age: 72 Year
  Sex: Female

DRUGS (2)
  1. LETROZOLE [Suspect]
     Active Substance: LETROZOLE
     Indication: Invasive lobular breast carcinoma
     Dosage: UNK (DOSE UNKNOWN, FREQUENCY UNKNOWN)
     Route: 065
     Dates: start: 202303
  2. IBRANCE [Suspect]
     Active Substance: PALBOCICLIB
     Indication: Invasive lobular breast carcinoma
     Dosage: UNK
     Route: 065
     Dates: start: 202303

REACTIONS (13)
  - Anaemia [Not Recovered/Not Resolved]
  - Urinary retention [Unknown]
  - Cholestasis [Unknown]
  - Neutropenia [Not Recovered/Not Resolved]
  - Leukopenia [Recovered/Resolved]
  - Hyperbilirubinaemia [Unknown]
  - Blood alkaline phosphatase increased [Unknown]
  - Hyperglycaemia [Unknown]
  - Dry skin [Unknown]
  - Hypocalcaemia [Unknown]
  - Hyponatraemia [Unknown]
  - Pallor [Unknown]
  - Alopecia [Unknown]

NARRATIVE: CASE EVENT DATE: 20230316
